FAERS Safety Report 9248091 (Version 5)
Quarter: 2013Q4

REPORT INFORMATION
  Report Type: Spontaneous
  Country: US (occurrence: US)
  Receive Date: 20130423
  Receipt Date: 20131024
  Transmission Date: 20140711
  Serious: No
  Sender: FDA-Public Use
  Company Number: US-PFIZER INC-2013122113

PATIENT
  Age: 77 Year
  Sex: Female
  Weight: 71 kg

DRUGS (16)
  1. XELJANZ [Suspect]
     Indication: RHEUMATOID ARTHRITIS
     Dosage: 5 MG, 2X/DAY
     Route: 048
     Dates: start: 2013, end: 20131002
  2. XELJANZ [Suspect]
     Indication: PAIN
  3. PREDNISONE [Concomitant]
     Dosage: UNK
  4. SULFASALAZINE [Concomitant]
     Dosage: 500 MG
  5. NORVASC [Concomitant]
     Dosage: 2.5 MG, UNK
  6. PRIMIDONE [Concomitant]
     Dosage: 50 MG, UNK
  7. CITRACAL [Concomitant]
     Dosage: UNK
  8. VITAMIN D [Concomitant]
     Dosage: UNK
  9. SPIRONOLACTONE [Concomitant]
     Dosage: 25 MG, UNK
  10. BYSTOLIC [Concomitant]
     Dosage: 2.5 MG, UNK
  11. ADVIL [Concomitant]
     Dosage: 200 MG, UNK
  12. SULFAZINE (ENTERIC COATED) [Concomitant]
     Dosage: 500 MG
  13. MAGNESIUM [Concomitant]
     Dosage: 200 MG, UNK
  14. VITAMIN C [Concomitant]
     Dosage: 100 MG, UNK
  15. TURMERIC [Concomitant]
     Dosage: 500 MG, UNK
  16. MULTIVITAMINS [Concomitant]
     Dosage: UNK

REACTIONS (6)
  - Back pain [Unknown]
  - Fatigue [Unknown]
  - Arthralgia [Not Recovered/Not Resolved]
  - Alopecia [Unknown]
  - Drug ineffective [Unknown]
  - Blood cholesterol increased [Unknown]
